FAERS Safety Report 5146436-5 (Version None)
Quarter: 2006Q4

REPORT INFORMATION
  Report Type: 
  Country: None (occurrence: None)
  Receive Date: 20061102
  Receipt Date: 20061019
  Transmission Date: 20070319
  Serious: Yes (Death, Other)
  Sender: FDA-Public Use
  Company Number: 2006022566

PATIENT
  Sex: Female
  Weight: 49.8957 kg

DRUGS (7)
  1. NEURONTIN [Suspect]
     Indication: CONVULSION
     Dosage: 3600 MG (1200 MG, 3 IN 1 D), ORAL
     Route: 048
     Dates: start: 19980101
  2. NEURONTIN [Suspect]
     Indication: NECK PAIN
     Dosage: 3600 MG (1200 MG, 3 IN 1 D), ORAL
     Route: 048
     Dates: start: 19980101
  3. CARBAMAZEPINE [Suspect]
     Indication: CONVULSION
     Dosage: 800 MG  (400 MG, 2 IN 1 D),ORAL
     Route: 048
  4. WELLBUTRIN [Suspect]
     Indication: DEPRESSION
     Dates: start: 19980101
  5. ULTRAM [Suspect]
     Indication: PAIN
     Dosage: UP TO 8 TABLETS (50 MG, 1 D), ORAL
     Route: 048
  6. ULTRAM [Suspect]
     Indication: PROCEDURAL PAIN
     Dosage: UP TO 8 TABLETS (50 MG, 1 D), ORAL
     Route: 048
  7. ATIVAN [Suspect]
     Indication: CONVULSION
     Dosage: 1 MG (1 D), ORAL
     Route: 048
     Dates: start: 19990830

REACTIONS (24)
  - AORTIC INJURY [None]
  - BACK INJURY [None]
  - CARDIAC PERFORATION [None]
  - CHEST INJURY [None]
  - CLAVICLE FRACTURE [None]
  - COMPLETED SUICIDE [None]
  - CONVULSIVE THRESHOLD LOWERED [None]
  - DEPRESSION [None]
  - DRUG INEFFECTIVE [None]
  - FALL [None]
  - FEAR OF DEATH [None]
  - GRAND MAL CONVULSION [None]
  - HAEMOTHORAX [None]
  - HEPATIC TRAUMA [None]
  - INAPPROPRIATE SCHEDULE OF DRUG ADMINISTRATION [None]
  - OESOPHAGEAL PERFORATION [None]
  - PAIN [None]
  - PERITONEAL HAEMORRHAGE [None]
  - PROCEDURAL PAIN [None]
  - RETROPERITONEAL HAEMORRHAGE [None]
  - RIB FRACTURE [None]
  - THORACIC VERTEBRAL FRACTURE [None]
  - TREATMENT NONCOMPLIANCE [None]
  - WOUND [None]
